FAERS Safety Report 23092233 (Version 1)
Quarter: 2023Q4

REPORT INFORMATION
  Report Type: Report from Study
  Country: US (occurrence: US)
  Receive Date: 20231021
  Receipt Date: 20231021
  Transmission Date: 20240110
  Serious: Yes (Death)
  Sender: FDA-Public Use
  Company Number: US-002147023-NVSC2023US226354

PATIENT
  Sex: Male

DRUGS (1)
  1. PLUVICTO [Suspect]
     Active Substance: LUTETIUM LU-177 VIPIVOTIDE TETRAXETAN
     Indication: Product used for unknown indication
     Dosage: UNK
     Route: 042
     Dates: start: 20230519, end: 20230623

REACTIONS (1)
  - Death [Fatal]
